FAERS Safety Report 11709639 (Version 2)
Quarter: 2015Q4

REPORT INFORMATION
  Report Type: Spontaneous
  Country: US (occurrence: US)
  Receive Date: 20151104
  Receipt Date: 20151110
  Transmission Date: 20160304
  Serious: No
  Sender: FDA-Public Use
  Company Number: US-ELI_LILLY_AND_COMPANY-US201107002838

PATIENT
  Age: 76 Year
  Sex: Female

DRUGS (5)
  1. FORTEO [Suspect]
     Active Substance: TERIPARATIDE
     Dosage: 20 UG, QD
     Route: 065
  2. GLYBURIDE. [Concomitant]
     Active Substance: GLYBURIDE
  3. FORTEO [Suspect]
     Active Substance: TERIPARATIDE
     Indication: OSTEOPOROSIS
     Dosage: 20 UG, QD
     Route: 065
     Dates: start: 20110519
  4. AVANDIA [Concomitant]
     Active Substance: ROSIGLITAZONE MALEATE
  5. METFORMIN [Concomitant]
     Active Substance: METFORMIN HYDROCHLORIDE

REACTIONS (9)
  - Head discomfort [Recovering/Resolving]
  - Dizziness [Recovering/Resolving]
  - Dizziness [Unknown]
  - Asthenia [Recovering/Resolving]
  - Asthenia [Unknown]
  - Adverse reaction [Unknown]
  - Vision blurred [Recovering/Resolving]
  - Glycosylated haemoglobin increased [Recovering/Resolving]
  - Hyperhidrosis [Unknown]

NARRATIVE: CASE EVENT DATE: 20110603
